FAERS Safety Report 9507746 (Version 3)
Quarter: 2015Q2

REPORT INFORMATION
  Report Type: Spontaneous
  Country: US (occurrence: US)
  Receive Date: 20130909
  Receipt Date: 20150604
  Transmission Date: 20150821
  Serious: Yes (Death, Hospitalization, Disabling)
  Sender: FDA-Public Use
  Company Number: US-SANOFI-AVENTIS-2013SA088412

PATIENT
  Age: 52 Year
  Sex: Female

DRUGS (10)
  1. ASPIRIN. [Concomitant]
     Active Substance: ASPIRIN
     Route: 048
     Dates: start: 2012, end: 2012
  2. OMEPRAZOLE. [Concomitant]
     Active Substance: OMEPRAZOLE
     Route: 048
  3. LEVOTHYROXINE SODIUM. [Concomitant]
     Active Substance: LEVOTHYROXINE SODIUM
     Route: 048
  4. DIOVAN [Concomitant]
     Active Substance: VALSARTAN
  5. DORZOLAMIDE/TIMOLOL [Concomitant]
  6. LANTUS [Concomitant]
     Active Substance: INSULIN GLARGINE
     Dosage: 98 UNITS AT BEDTIME
  7. GABAPENTIN. [Concomitant]
     Active Substance: GABAPENTIN
     Route: 048
  8. PLAVIX [Suspect]
     Active Substance: CLOPIDOGREL BISULFATE
     Route: 048
     Dates: start: 20120103, end: 20120423
  9. NOVOLOG [Concomitant]
     Active Substance: INSULIN ASPART
     Dosage: 34 UNITS BEFORE BREAKFAST AND 26 UNITS BEFORE LUNCH AND SUPPER
  10. CRESTOR [Concomitant]
     Active Substance: ROSUVASTATIN CALCIUM
     Route: 048

REACTIONS (4)
  - Pain [Unknown]
  - Injury [Unknown]
  - Cerebral haemorrhage [Fatal]
  - Physical disability [Unknown]

NARRATIVE: CASE EVENT DATE: 20120423
